FAERS Safety Report 4339529-3 (Version None)
Quarter: 2004Q2

REPORT INFORMATION
  Report Type: 
  Country: None (occurrence: None)
  Receive Date: 20040415
  Receipt Date: 20040406
  Transmission Date: 20050107
  Serious: Yes (Other)
  Sender: FDA-Public Use
  Company Number: GB-BRISTOL-MYERS SQUIBB COMPANY-12551552

PATIENT
  Age: 35 Year
  Sex: Female

DRUGS (3)
  1. HYDROXYUREA [Suspect]
     Indication: PSORIASIS
     Route: 048
     Dates: start: 20040301, end: 20040310
  2. METHOTREXATE [Concomitant]
     Indication: PSORIASIS
     Route: 048
     Dates: start: 20030201
  3. FOLIC ACID [Concomitant]
     Indication: PSORIASIS
     Route: 048
     Dates: start: 20030201

REACTIONS (1)
  - CORNEAL DISORDER [None]
